FAERS Safety Report 26180901 (Version 1)
Quarter: 2025Q4

REPORT INFORMATION
  Report Type: Spontaneous
  Country: US (occurrence: US)
  Receive Date: 20251221
  Receipt Date: 20251221
  Transmission Date: 20260117
  Serious: Yes (Life-Threatening, Hospitalization, Other)
  Sender: CB FLEET
  Company Number: US-PRESTIGE-202512-US-003967

PATIENT
  Age: 15 Year
  Sex: Male

DRUGS (1)
  1. DIPHENHYDRAMINE HYDROCHLORIDE [Suspect]
     Active Substance: DIPHENHYDRAMINE HYDROCHLORIDE
     Indication: Intentional overdose
     Dosage: 7.5G

REACTIONS (9)
  - Tachycardia [Recovered/Resolved]
  - Aspiration [Recovered/Resolved]
  - Hypoxia [Recovered/Resolved]
  - Pulse absent [Recovered/Resolved]
  - Acute respiratory distress syndrome [Recovered/Resolved]
  - Seizure [Recovered/Resolved]
  - Intentional overdose [None]
  - Pyrexia [Recovered/Resolved]
  - Vomiting [Recovered/Resolved]
